FAERS Safety Report 14392902 (Version 1)
Quarter: 2018Q1

REPORT INFORMATION
  Report Type: Spontaneous
  Country: US (occurrence: US)
  Receive Date: 20180112
  Receipt Date: 20180112
  Transmission Date: 20180509
  Serious: Yes (Other)
  Sender: FDA-Public Use
  Company Number: None

PATIENT
  Sex: Male
  Weight: 54 kg

DRUGS (14)
  1. MEDTRONIC PACER [Concomitant]
  2. OMEPRAZOLE. [Concomitant]
     Active Substance: OMEPRAZOLE
  3. FLORAJEN [Concomitant]
  4. LACTASE [Concomitant]
     Active Substance: LACTASE
  5. CARDIAC STENT [Concomitant]
  6. CETERIZINE HYDROCHLORIDE [Concomitant]
  7. XYZAL [Concomitant]
     Active Substance: LEVOCETIRIZINE DIHYDROCHLORIDE
  8. AMIODARONE HYDROCLORIDE [Suspect]
     Active Substance: AMIODARONE HYDROCHLORIDE
     Indication: ATRIAL FIBRILLATION
     Dosage: ?          QUANTITY:1 TABLET(S);?
     Route: 048
     Dates: start: 20170113, end: 20170819
  9. STALL [Concomitant]
  10. SIMVASTATIN. [Concomitant]
     Active Substance: SIMVASTATIN
  11. CATARACT IMPLANTS [Concomitant]
  12. WARFARIN [Concomitant]
     Active Substance: WARFARIN
  13. FUROSEMIDE. [Concomitant]
     Active Substance: FUROSEMIDE
  14. GAS-X [Concomitant]
     Active Substance: DIMETHICONE

REACTIONS (7)
  - Dysphagia [None]
  - Pancreatitis acute [None]
  - Tremor [None]
  - Dyskinesia [None]
  - Dyspnoea [None]
  - Fatigue [None]
  - Pulmonary mass [None]

NARRATIVE: CASE EVENT DATE: 20170819
